FAERS Safety Report 10659921 (Version 3)
Quarter: 2014Q4

REPORT INFORMATION
  Report Type: Spontaneous
  Country: US (occurrence: US)
  Receive Date: 20141217
  Receipt Date: 20141223
  Transmission Date: 20150529
  Serious: No
  Sender: FDA-Public Use
  Company Number: US-GLAXOSMITHKLINE-A1078335A

PATIENT

DRUGS (1)
  1. VOTRIENT [Suspect]
     Active Substance: PAZOPANIB HYDROCHLORIDE
     Indication: NEOPLASM MALIGNANT
     Dosage: ;AS OF 16 OCTOBER 2014, 200 MG THREE TIMES A DAY SINCE 21 FEBRUARY 2014
     Route: 065
     Dates: start: 20140221

REACTIONS (8)
  - Hair colour changes [Unknown]
  - Diarrhoea [Unknown]
  - Palmar-plantar erythrodysaesthesia syndrome [Unknown]
  - Blister [Not Recovered/Not Resolved]
  - Hyperkeratosis [Unknown]
  - Biopsy [Unknown]
  - Alopecia [Unknown]
  - Dry skin [Not Recovered/Not Resolved]

NARRATIVE: CASE EVENT DATE: 20141013
